FAERS Safety Report 20761200 (Version 1)
Quarter: 2022Q2

REPORT INFORMATION
  Report Type: Spontaneous
  Country: US (occurrence: US)
  Receive Date: 20220428
  Receipt Date: 20220428
  Transmission Date: 20220721
  Serious: No
  Sender: FDA-Public Use
  Company Number: US-AMGEN-USASP2022068707

PATIENT
  Age: 59 Year
  Sex: Male

DRUGS (3)
  1. REPATHA [Suspect]
     Active Substance: EVOLOCUMAB
     Indication: Blood cholesterol increased
     Dosage: UNK, Q2WK
     Route: 065
  2. PRASUGREL [Concomitant]
     Active Substance: PRASUGREL
     Dosage: 10 MILLIGRAM, QD
  3. ASPIRIN [Concomitant]
     Active Substance: ASPIRIN
     Dosage: 162 MILLIGRAM, QD

REACTIONS (4)
  - Genital rash [Not Recovered/Not Resolved]
  - Breast tenderness [Not Recovered/Not Resolved]
  - Burning sensation [Unknown]
  - Wrong technique in product usage process [Unknown]

NARRATIVE: CASE EVENT DATE: 20220413
